FAERS Safety Report 4791516-7 (Version None)
Quarter: 2005Q4

REPORT INFORMATION
  Report Type: 
  Country: None (occurrence: None)
  Receive Date: 20051007
  Receipt Date: 20041215
  Transmission Date: 20060501
  Serious: No
  Sender: FDA-Public Use
  Company Number: US-BRISTOL-MYERS SQUIBB COMPANY-12796058

PATIENT

DRUGS (2)
  1. AVAPRO [Suspect]
     Indication: HYPERTENSION
     Route: 048
  2. AVAPRO [Suspect]
     Indication: DIABETIC NEPHROPATHY
     Route: 048

REACTIONS (1)
  - DYSGEUSIA [None]
